FAERS Safety Report 9187000 (Version 2)
Quarter: 2013Q4

REPORT INFORMATION
  Report Type: Spontaneous
  Country: BR (occurrence: BR)
  Receive Date: 20130325
  Receipt Date: 20131017
  Transmission Date: 20140711
  Serious: Yes (Other)
  Sender: FDA-Public Use
  Company Number: BR-PFIZER INC-2013091425

PATIENT
  Age: 22 Year
  Sex: Female

DRUGS (4)
  1. SULFADIAZINE [Suspect]
     Dosage: 3 G/DAY
  2. PYRIMETHAMINE [Suspect]
     Dosage: 50 MG/DAY
  3. SPIRAMYCIN [Concomitant]
     Dosage: 3 G/DAY, ALTERNATED WEEKLY REGIMENS
  4. FOLINIC ACID [Concomitant]
     Dosage: 10 MG/DAY

REACTIONS (1)
  - Candida infection [Unknown]
